FAERS Safety Report 7408613-X (Version None)
Quarter: 2011Q2

REPORT INFORMATION
  Report Type: 
  Country: None (occurrence: None)
  Receive Date: 20110412
  Receipt Date: 20110329
  Transmission Date: 20111010
  Serious: Yes (Other)
  Sender: FDA-Public Use
  Company Number: PHEH2010US00901

PATIENT
  Sex: Male
  Weight: 92.3 kg

DRUGS (2)
  1. EXJADE [Suspect]
     Indication: PORPHYRIN METABOLISM DISORDER
     Dosage: 2000 MG, QD
     Route: 048
  2. EXJADE [Suspect]
     Dosage: 3500 MG, QD
     Route: 048

REACTIONS (3)
  - PNEUMONIA [None]
  - MALAISE [None]
  - MUSCLE SPASMS [None]
